FAERS Safety Report 4627817-2 (Version None)
Quarter: 2005Q2

REPORT INFORMATION
  Report Type: 
  Country: None (occurrence: None)
  Receive Date: 20050406
  Receipt Date: 20050216
  Transmission Date: 20051028
  Serious: Yes (Other)
  Sender: FDA-Public Use
  Company Number: 200511480GDDC

PATIENT
  Age: 45 Year
  Sex: Female

DRUGS (6)
  1. ANZEMET [Suspect]
     Indication: PROPHYLAXIS OF NAUSEA AND VOMITING
     Route: 042
  2. SEVOFLURANE [Suspect]
  3. FENTANYL [Concomitant]
     Indication: ANAESTHESIA
     Route: 042
  4. PROPOFOL [Concomitant]
     Indication: ANAESTHESIA
     Route: 042
  5. VECURONIUM BROMIDE [Concomitant]
     Route: 042
  6. ISOFLURANE [Concomitant]
     Indication: ANAESTHESIA
     Route: 055

REACTIONS (3)
  - DRUG INTERACTION [None]
  - HYPOTENSION [None]
  - SUPRAVENTRICULAR TACHYCARDIA [None]
